FAERS Safety Report 6496737-3 (Version None)
Quarter: 2009Q4

REPORT INFORMATION
  Report Type: 
  Country: None (occurrence: None)
  Receive Date: 20091211
  Receipt Date: 20091201
  Transmission Date: 20100525
  Serious: Yes (Death)
  Sender: FDA-Public Use
  Company Number: 040

PATIENT
  Age: 51 Year
  Sex: Female
  Weight: 122.4712 kg

DRUGS (7)
  1. FAZACLO ODT [Suspect]
     Indication: SCHIZOPHRENIA
     Dosage: 300 MG PO DAILY
     Route: 048
     Dates: start: 20051115, end: 20060202
  2. AMLODIPINE [Concomitant]
  3. LIPITOR [Concomitant]
  4. BENZTROPINE MESYLATE [Concomitant]
  5. PROZAC [Concomitant]
  6. FUROSEMIDE [Concomitant]
  7. PROTONIX [Concomitant]

REACTIONS (1)
  - ESSENTIAL HYPERTENSION [None]
